FAERS Safety Report 7462802-7 (Version None)
Quarter: 2011Q2

REPORT INFORMATION
  Report Type: 
  Country: None (occurrence: None)
  Receive Date: 20110506
  Receipt Date: 20110119
  Transmission Date: 20111010
  Serious: Yes (Hospitalization)
  Sender: FDA-Public Use
  Company Number: US-BAYER-201035911NA

PATIENT
  Age: 40 Year
  Sex: Female
  Weight: 90.703 kg

DRUGS (11)
  1. AVALIDE [Concomitant]
     Indication: OEDEMA
  2. ANTIBIOTICS [Concomitant]
  3. NSAID'S [Concomitant]
  4. YASMIN [Suspect]
     Indication: PRODUCT USED FOR UNKNOWN INDICATION
     Route: 048
     Dates: start: 20020406, end: 20020502
  5. HYDROCHLOROTHIAZIDE [Concomitant]
  6. AVAPRO [Concomitant]
     Dosage: UNK
     Dates: start: 20020101, end: 20100101
  7. LISINOPRIL [Concomitant]
  8. AMOXICILLIN [Concomitant]
  9. IBUPROFEN [Concomitant]
  10. ZESTRIL [Concomitant]
  11. MOTRIN [Concomitant]

REACTIONS (5)
  - THROMBOSIS [None]
  - FATIGUE [None]
  - DEEP VEIN THROMBOSIS [None]
  - CHEST PAIN [None]
  - DYSPNOEA [None]
